FAERS Safety Report 13746805 (Version 1)
Quarter: 2017Q3

REPORT INFORMATION
  Report Type: Report from Study
  Country: US (occurrence: US)
  Receive Date: 20170712
  Receipt Date: 20170712
  Transmission Date: 20171127
  Serious: Yes (Death)
  Sender: FDA-Public Use
  Company Number: US-B.I. PHARMACEUTICALS,INC./RIDGEFIELD-2017-BI-035242

PATIENT

DRUGS (3)
  1. ASPIRIN. [Concomitant]
     Active Substance: ASPIRIN
     Indication: THROMBOSIS PROPHYLAXIS
     Dosage: TITRATED TO ARACHIDONIC ACID (AA) INHIBITION OF 470% BY THROMBOELASTOGRAPHY/ PLATELETMAPPING (TEG/PM
     Route: 065
  2. PERSANTIN [Suspect]
     Active Substance: DIPYRIDAMOLE
     Indication: THROMBOSIS PROPHYLAXIS
     Dosage: TITRATED TO AN ADENOSINE DIPHOSPHATE (ADP) NET GA 4 TO 8 OR ADP INHIBITION 470% BY THROMBOELASTOGRAP
     Route: 065
  3. ENOXAPARIN [Concomitant]
     Active Substance: ENOXAPARIN
     Indication: THROMBOSIS PROPHYLAXIS
     Route: 065

REACTIONS (1)
  - Transplantation complication [Fatal]
